FAERS Safety Report 25421574 (Version 1)
Quarter: 2025Q2

REPORT INFORMATION
  Report Type: Spontaneous
  Country: CN (occurrence: CN)
  Receive Date: 20250611
  Receipt Date: 20250611
  Transmission Date: 20250717
  Serious: Yes (Life-Threatening, Hospitalization)
  Sender: ROCHE
  Company Number: CN-BoehringerIngelheim-2025-BI-075125

PATIENT
  Age: 75 Year
  Sex: Female
  Weight: 54.0 kg

DRUGS (4)
  1. ALTEPLASE [Suspect]
     Active Substance: ALTEPLASE
     Indication: Thrombolysis
     Route: 042
     Dates: start: 20250506, end: 20250506
  2. PROTHROMBIN COMPLEX CONCENTRATE [Suspect]
     Active Substance: COAGULATION FACTOR IX HUMAN\COAGULATION FACTOR VII HUMAN\COAGULATION FACTOR X HUMAN\PROTEIN C\PROTEI
     Indication: Factor II deficiency
     Route: 042
     Dates: start: 20250506, end: 20250506
  3. IOVERSOL [Suspect]
     Active Substance: IOVERSOL
     Indication: Angiogram
     Route: 042
     Dates: start: 20250506, end: 20250506
  4. TRANEXAMIC ACID [Concomitant]
     Active Substance: TRANEXAMIC ACID
     Indication: Haemostasis
     Route: 042
     Dates: start: 20250506, end: 20250506

REACTIONS (4)
  - Eye oedema [Recovering/Resolving]
  - Rash erythematous [Recovered/Resolved]
  - Cerebral haemorrhage [Recovering/Resolving]
  - Off label use [Unknown]

NARRATIVE: CASE EVENT DATE: 20250506
